FAERS Safety Report 23827453 (Version 1)
Quarter: 2024Q2

REPORT INFORMATION
  Report Type: Spontaneous
  Country: US (occurrence: None)
  Receive Date: 20240506
  Receipt Date: 20240506
  Transmission Date: 20240715
  Serious: Yes (Life-Threatening, Disabling, Other)
  Sender: FDA-Public Use
  Company Number: None

PATIENT
  Sex: Female
  Weight: 42.75 kg

DRUGS (10)
  1. KETAMINE [Suspect]
     Active Substance: KETAMINE
     Indication: Neck pain
  2. KETAMINE [Suspect]
     Active Substance: KETAMINE
     Indication: Injury
  3. KETAMINE [Suspect]
     Active Substance: KETAMINE
     Indication: Depression
  4. KETAMINE [Suspect]
     Active Substance: KETAMINE
     Indication: Post-traumatic stress disorder
  5. LAMICTAL [Suspect]
     Active Substance: LAMOTRIGINE
  6. CANNABIS SATIVA SUBSP. INDICA TOP [Concomitant]
     Active Substance: CANNABIS SATIVA SUBSP. INDICA TOP
  7. LITHIUM [Concomitant]
     Active Substance: LITHIUM
  8. SPIRONOLACTONE [Concomitant]
     Active Substance: SPIRONOLACTONE
  9. D-MANNOSE [Concomitant]
  10. ALOE VERA LEAF [Concomitant]
     Active Substance: ALOE VERA LEAF

REACTIONS (7)
  - Vaginal discharge [None]
  - Urinary tract disorder [None]
  - Abdominal pain [None]
  - Pelvic pain [None]
  - Genital swelling [None]
  - Bladder spasm [None]
  - Suicidal ideation [None]
